FAERS Safety Report 5752514-X (Version None)
Quarter: 2008Q2

REPORT INFORMATION
  Report Type: 
  Country: None (occurrence: None)
  Receive Date: 20080529
  Receipt Date: 20080519
  Transmission Date: 20081010
  Serious: Yes (Other)
  Sender: FDA-Public Use
  Company Number: PHHO2008TW03720

PATIENT
  Sex: Male
  Weight: 73 kg

DRUGS (2)
  1. LDT600 LDT+TAB [Suspect]
     Indication: HEPATITIS B
     Dosage: 600 MG,
     Route: 048
     Dates: start: 20071011, end: 20080111
  2. PEGASYS [Suspect]
     Indication: HEPATITIS B
     Dosage: 180 UG,
     Route: 058
     Dates: start: 20071011

REACTIONS (5)
  - CARPAL TUNNEL SYNDROME [None]
  - HYPOAESTHESIA [None]
  - MYALGIA [None]
  - PERIPHERAL SENSORY NEUROPATHY [None]
  - RADICULOPATHY [None]
